FAERS Safety Report 9120129 (Version 1)
Quarter: 2013Q1

REPORT INFORMATION
  Report Type: Spontaneous
  Country: FR (occurrence: FR)
  Receive Date: 20130226
  Receipt Date: 20130226
  Transmission Date: 20140127
  Serious: No
  Sender: FDA-Public Use
  Company Number: FR-JNJFOC-20130208441

PATIENT
  Sex: 0

DRUGS (1)
  1. DUROGESIC [Suspect]
     Indication: PRODUCT USED FOR UNKNOWN INDICATION
     Dosage: TWO THIRDS OF A PATCH
     Route: 062

REACTIONS (3)
  - Drug prescribing error [Unknown]
  - Medication error [Unknown]
  - Off label use [Unknown]
